FAERS Safety Report 18503131 (Version 2)
Quarter: 2020Q4

REPORT INFORMATION
  Report Type: Spontaneous
  Country: IE (occurrence: IE)
  Receive Date: 20201113
  Receipt Date: 20201204
  Transmission Date: 20210114
  Serious: Yes (Hospitalization, Other)
  Sender: FDA-Public Use
  Company Number: IE-TEVA-2020-IE-1847694

PATIENT
  Age: 37 Year
  Sex: Female

DRUGS (7)
  1. PETHIDINE HYDROCHLORIDE 50MG/ML SOLUTION FOR INJECTION [Suspect]
     Active Substance: MEPERIDINE HYDROCHLORIDE
     Dosage: AT 08:10 50MG ADMINISTERED, AT 08:13 REMAINING 50MG ADMINISTERED
     Route: 042
     Dates: start: 20201014
  2. GONAL-F [Concomitant]
     Active Substance: FOLLITROPIN
     Indication: INFERTILITY
     Dosage: 300 IU
     Route: 058
     Dates: start: 20201003
  3. DIAZEPAM. [Suspect]
     Active Substance: DIAZEPAM
     Dosage: AT 08:10 5MG ADMINISTERED, AT 08:13 REMAINING 5MG ADMINISTERED
     Route: 042
     Dates: start: 20201014
  4. SODIUM CHLORIDE 0.9% W/V INTRAVENOUS INFUSION BP [Suspect]
     Active Substance: SODIUM CHLORIDE
     Dosage: AT 08:10 IV FLUIDS NACL 250MLS INFUSING, AT 08:40 IVF 250MLS FINISHED,
     Route: 042
     Dates: start: 20201014
  5. LUVERIS [Concomitant]
     Active Substance: LUTROPIN ALFA
     Indication: INFERTILITY
     Dosage: 150 IU
     Route: 058
     Dates: start: 20201003
  6. OVITRELLE [Concomitant]
     Active Substance: CHORIOGONADOTROPIN ALFA
     Indication: INFERTILITY
     Dosage: SINGLE DOSE, 250MCG
     Route: 058
     Dates: start: 20201012
  7. ONDANSETRON [Suspect]
     Active Substance: ONDANSETRON
     Dosage: AT 08:10 4MG
     Route: 042
     Dates: start: 20201014

REACTIONS (10)
  - Pallor [Recovered/Resolved]
  - Snoring [Recovered/Resolved]
  - Pulse abnormal [Recovered/Resolved]
  - Lip dry [Recovered/Resolved]
  - Pulse absent [Recovered/Resolved]
  - Fatigue [Recovered/Resolved]
  - Unresponsive to stimuli [Recovered/Resolved]
  - Moaning [Recovered/Resolved]
  - Coma scale abnormal [Recovered/Resolved]
  - Extremity contracture [Recovered/Resolved]

NARRATIVE: CASE EVENT DATE: 20201014
